FAERS Safety Report 24579303 (Version 2)
Quarter: 2025Q1

REPORT INFORMATION
  Report Type: Report from Study
  Country: BR (occurrence: BR)
  Receive Date: 20241105
  Receipt Date: 20250327
  Transmission Date: 20250409
  Serious: Yes (Hospitalization)
  Sender: NOVARTIS
  Company Number: BR-002147023-NVSC2024BR212787

PATIENT
  Sex: Female

DRUGS (1)
  1. KISQALI [Suspect]
     Active Substance: RIBOCICLIB
     Indication: Product used for unknown indication
     Route: 065

REACTIONS (9)
  - Malaise [Not Recovered/Not Resolved]
  - Metastases to liver [Unknown]
  - Hepatic cirrhosis [Not Recovered/Not Resolved]
  - Malignant peritoneal neoplasm [Not Recovered/Not Resolved]
  - Laryngeal haemorrhage [Recovered/Resolved]
  - Oesophageal haemorrhage [Recovered/Resolved]
  - Varices oesophageal [Unknown]
  - Haematemesis [Unknown]
  - Ascites [Not Recovered/Not Resolved]
